FAERS Safety Report 25650387 (Version 1)
Quarter: 2025Q3

REPORT INFORMATION
  Report Type: Spontaneous
  Country: AU (occurrence: AU)
  Receive Date: 20250806
  Receipt Date: 20250806
  Transmission Date: 20251021
  Serious: Yes (Other)
  Sender: GLAXOSMITHKLINE
  Company Number: AU-GSK-AU2025096677

PATIENT
  Age: 91 Year
  Sex: Female

DRUGS (1)
  1. MOMELOTINIB DIHYDROCHLORIDE [Suspect]
     Active Substance: MOMELOTINIB DIHYDROCHLORIDE
     Indication: Myelofibrosis

REACTIONS (3)
  - Myelofibrosis [Unknown]
  - Condition aggravated [Unknown]
  - Diarrhoea [Recovered/Resolved]
